FAERS Safety Report 20833080 (Version 1)
Quarter: 2022Q2

REPORT INFORMATION
  Report Type: Spontaneous
  Country: US (occurrence: None)
  Receive Date: 20220514
  Receipt Date: 20220514
  Transmission Date: 20220721
  Serious: Yes (Death)
  Sender: FDA-Public Use
  Company Number: None

PATIENT
  Sex: Female
  Weight: 30.8 kg

DRUGS (2)
  1. METHOTREXATE [Suspect]
     Active Substance: METHOTREXATE
     Dates: end: 20220429
  2. VINCRISTINE SULFATE [Suspect]
     Active Substance: VINCRISTINE SULFATE
     Dates: end: 20220429

REACTIONS (18)
  - Cardiac arrest [None]
  - Hypotension [None]
  - Respiratory failure [None]
  - Acute kidney injury [None]
  - Lactic acidosis [None]
  - Hypoxia [None]
  - Tachypnoea [None]
  - Hepatic failure [None]
  - Hepatic lesion [None]
  - Disseminated intravascular coagulation [None]
  - Catheter site haemorrhage [None]
  - Leukaemia recurrent [None]
  - Meningitis [None]
  - Altered state of consciousness [None]
  - Muscular weakness [None]
  - Central nervous system lesion [None]
  - Pyrexia [None]
  - Eye disorder [None]

NARRATIVE: CASE EVENT DATE: 20200512
